FAERS Safety Report 6485197-4 (Version None)
Quarter: 2009Q4

REPORT INFORMATION
  Report Type: 
  Country: None (occurrence: None)
  Receive Date: 20091203
  Receipt Date: 20091118
  Transmission Date: 20100525
  Serious: Yes (Other)
  Sender: FDA-Public Use
  Company Number: 2009110045

PATIENT
  Age: 94 Year
  Sex: Male

DRUGS (13)
  1. TORSEMIDE [Suspect]
     Indication: DRUG USE FOR UNKNOWN INDICATION
     Dates: start: 20090806, end: 20090810
  2. ROCEPHIN [Suspect]
     Dosage: INTRAVENOUS DRIP
     Route: 041
     Dates: start: 20090814, end: 20090822
  3. PENICILLIN G [Suspect]
     Dates: start: 20090727, end: 20090804
  4. AMOXICILLIN / CLAVULANIC ACID (AMOICILLIN, CLAVULANIC ACID) [Suspect]
     Dosage: ORAL
     Route: 048
     Dates: start: 20090724, end: 20090727
  5. VANCOMYCIN [Suspect]
     Dates: start: 20090725
  6. ENOXAPARIN SODIUM [Suspect]
     Dates: start: 20090724, end: 20090810
  7. PERFALFAN (PARACETAMOL) [Suspect]
     Dosage: INTRAVENOUS DRIP
     Route: 041
     Dates: start: 20090824, end: 20090827
  8. PRADIF (TAMSULOSIN) [Suspect]
     Dosage: ORAL
     Route: 048
     Dates: start: 20090805, end: 20090810
  9. LASIX [Suspect]
     Dosage: ORAL
     Route: 048
     Dates: start: 20090727, end: 20090804
  10. TEMGESIC (BUPRENORPHINE HC1) [Concomitant]
  11. FOLVITE (FOLIC ACID) [Concomitant]
  12. VITARUBIN (CYANOCOBALAMIN, HYDROXOCOBALAMIN ACETATE) [Concomitant]
  13. LAXOBERON (SODIUM PICOSULFATE) [Concomitant]

REACTIONS (9)
  - CLAVICLE FRACTURE [None]
  - FALL [None]
  - HEPATOCELLULAR INJURY [None]
  - INFLAMMATION [None]
  - LIVER INJURY [None]
  - RASH ERYTHEMATOUS [None]
  - RENAL FAILURE ACUTE [None]
  - RHABDOMYOLYSIS [None]
  - STREPTOCOCCAL BACTERAEMIA [None]
